FAERS Safety Report 5076518-8 (Version None)
Quarter: 2006Q3

REPORT INFORMATION
  Report Type: 
  Country: None (occurrence: None)
  Receive Date: 20060725
  Receipt Date: 20060321
  Transmission Date: 20061208
  Serious: No
  Sender: FDA-Public Use
  Company Number: 200611759BWH

PATIENT
  Age: 56 Year
  Sex: Female
  Weight: 63.5036 kg

DRUGS (1)
  1. NEXAVAR [Suspect]
     Indication: RENAL CELL CARCINOMA STAGE IV
     Dosage: 400 MG, BID, ORAL
     Route: 048
     Dates: start: 20060318

REACTIONS (3)
  - ARTHRALGIA [None]
  - FATIGUE [None]
  - JOINT STIFFNESS [None]
